FAERS Safety Report 8984483 (Version 1)
Quarter: 2012Q4

REPORT INFORMATION
  Report Type: 
  Country: CN (occurrence: CN)
  Receive Date: 20121225
  Receipt Date: 20121225
  Transmission Date: 20130627
  Serious: Yes (Hospitalization, Other)
  Sender: FDA-Public Use
  Company Number: PHHY2012CN109560

PATIENT
  Age: 15 Year
  Sex: Female
  Weight: 41 kg

DRUGS (3)
  1. TEGRETOL [Suspect]
     Indication: EPILEPSY
     Dosage: 0.5 DF, BID
     Route: 048
     Dates: start: 20111024, end: 20111030
  2. TEGRETOL [Suspect]
     Dosage: 0.5 DF, TID
     Route: 048
     Dates: start: 20111031, end: 20111102
  3. TEGRETOL [Suspect]
     Dosage: 1 DF, BID
     Route: 048
     Dates: start: 20111103, end: 20111105

REACTIONS (19)
  - Cardiac disorder [Recovering/Resolving]
  - Toxic epidermal necrolysis [Recovering/Resolving]
  - Erythema multiforme [Recovering/Resolving]
  - Rash maculo-papular [Recovering/Resolving]
  - Chills [Recovering/Resolving]
  - Ulcer [Recovering/Resolving]
  - Erythema [Recovering/Resolving]
  - Blister [Recovering/Resolving]
  - Mass [Recovering/Resolving]
  - Conjunctival hyperaemia [Recovering/Resolving]
  - Secretion discharge [Recovering/Resolving]
  - Chapped lips [Recovering/Resolving]
  - Mucosal ulceration [Recovering/Resolving]
  - Conjunctivitis [Recovering/Resolving]
  - Pyrexia [Recovering/Resolving]
  - Rash [Recovering/Resolving]
  - Hypoproteinaemia [Recovering/Resolving]
  - Photophobia [Recovering/Resolving]
  - Epilepsy [Recovering/Resolving]
